FAERS Safety Report 22305633 (Version 3)
Quarter: 2023Q2

REPORT INFORMATION
  Report Type: Spontaneous
  Country: AT (occurrence: AT)
  Receive Date: 20230510
  Receipt Date: 20230615
  Transmission Date: 20230722
  Serious: Yes (Other)
  Sender: FDA-Public Use
  Company Number: AT-CELLTRION INC.-2023AT009643

PATIENT

DRUGS (1)
  1. INFLIXIMAB [Suspect]
     Active Substance: INFLIXIMAB
     Indication: Sarcoidosis
     Dosage: START DATE OF THERAPY: 05/2023 (EXACT DATE UNKNOWN)
     Dates: start: 202305

REACTIONS (3)
  - Sarcoidosis [Unknown]
  - Off label use [Unknown]
  - Treatment noncompliance [Unknown]
